FAERS Safety Report 9282553 (Version 1)
Quarter: 2013Q2

REPORT INFORMATION
  Report Type: Spontaneous
  Country: US (occurrence: US)
  Receive Date: 20130510
  Receipt Date: 20130510
  Transmission Date: 20140414
  Serious: Yes (Other)
  Sender: FDA-Public Use
  Company Number: CHPA2013US003910

PATIENT
  Age: 69 Year
  Sex: Female

DRUGS (10)
  1. MAALOX ADV MAXIMUM STRENGTH ANTACID/ANTIGAS [Suspect]
     Indication: HIATUS HERNIA
     Dosage: 6 TSP, PRN
     Route: 048
  2. MAALOX ADV MAXIMUM STRENGTH ANTACID/ANTIGAS [Suspect]
     Indication: GASTROOESOPHAGEAL REFLUX DISEASE
     Dosage: 6 TSP, TID
     Route: 048
     Dates: start: 1986, end: 2005
  3. MAALOX ADV MAXIMUM STRENGTH ANTACID/ANTIGAS [Suspect]
     Indication: DYSPEPSIA
  4. MAALOX ADV MAXIMUM STRENGTH ANTACID/ANTIGAS [Suspect]
     Indication: FLATULENCE
  5. MAALOX ADV MAXIMUM STRENGTH ANTACID/ANTIGAS [Suspect]
     Indication: GASTROOESOPHAGEAL REFLUX DISEASE
  6. ASPIRIN [Concomitant]
     Dosage: 81 MG, UNK
  7. LISINOPRIL [Concomitant]
  8. METOPROLOL [Concomitant]
  9. AMLODIPINE [Concomitant]
  10. SIMVASTATIN [Concomitant]

REACTIONS (11)
  - Myocardial infarction [Recovered/Resolved]
  - Hypertension [Not Recovered/Not Resolved]
  - Eructation [Unknown]
  - Gastrooesophageal reflux disease [Not Recovered/Not Resolved]
  - Pain [Unknown]
  - Hyperhidrosis [Unknown]
  - Pallor [Unknown]
  - Off label use [Unknown]
  - Overdose [Unknown]
  - Incorrect dose administered [Unknown]
  - Incorrect drug administration duration [Unknown]
